FAERS Safety Report 8385797-0 (Version None)
Quarter: 2012Q2

REPORT INFORMATION
  Report Type: 
  Country: None (occurrence: None)
  Receive Date: 20120525
  Receipt Date: 20120522
  Transmission Date: 20120825
  Serious: No
  Sender: FDA-Public Use
  Company Number: US-PFIZER INC-2012124041

PATIENT
  Sex: Female
  Weight: 63.492 kg

DRUGS (5)
  1. LYRICA [Suspect]
     Indication: NEUROPATHY PERIPHERAL
     Dosage: 100 MG, 4X/DAY
     Route: 048
     Dates: end: 20120101
  2. LYRICA [Suspect]
     Indication: PARAESTHESIA
     Dosage: 100 MG, 3X/DAY
     Route: 048
     Dates: start: 20120101
  3. LYRICA [Suspect]
  4. LYRICA [Suspect]
     Indication: PAIN IN EXTREMITY
  5. FENTANYL [Concomitant]
     Indication: PAIN
     Dosage: 12 MG, UNK

REACTIONS (3)
  - FALL [None]
  - BLOOD SODIUM DECREASED [None]
  - BLOOD CHOLESTEROL INCREASED [None]
